FAERS Safety Report 6309423-7 (Version None)
Quarter: 2009Q3

REPORT INFORMATION
  Report Type: 
  Country: None (occurrence: None)
  Receive Date: 20090811
  Receipt Date: 20090601
  Transmission Date: 20100115
  Serious: No
  Sender: FDA-Public Use
  Company Number: 1000006493

PATIENT
  Age: 63 Year
  Sex: Female

DRUGS (10)
  1. SAVELLA [Suspect]
     Indication: FIBROMYALGIA
     Dosage: SEE IMAGE
     Route: 048
     Dates: start: 20090517, end: 20090517
  2. SAVELLA [Suspect]
     Indication: FIBROMYALGIA
     Dosage: SEE IMAGE
     Route: 048
     Dates: start: 20090518, end: 20090519
  3. SAVELLA [Suspect]
     Indication: FIBROMYALGIA
     Dosage: SEE IMAGE
     Route: 048
     Dates: start: 20090520, end: 20090523
  4. SAVELLA [Suspect]
     Indication: FIBROMYALGIA
     Dosage: SEE IMAGE
     Route: 048
     Dates: start: 20090524
  5. AMITRIPTXLINE (75 MILLIGRAM) [Concomitant]
  6. LORAZEPAM LEVOTHROID (0.075 MILLIGRAM) [Concomitant]
  7. PROTONIX (40 MILLIGRAM) [Concomitant]
  8. VITAMINS [Concomitant]
  9. MORPHINE (30 MILLIGRAM) [Concomitant]
  10. ULTRAM [Concomitant]

REACTIONS (4)
  - CHILLS [None]
  - FEELING ABNORMAL [None]
  - GAIT DISTURBANCE [None]
  - NAUSEA [None]
